FAERS Safety Report 14026673 (Version 1)
Quarter: 2017Q3

REPORT INFORMATION
  Report Type: Not Available
  Country: DE (occurrence: DE)
  Receive Date: 20170929
  Receipt Date: 20170929
  Transmission Date: 20171128
  Serious: Yes (Death)
  Sender: FDA-Public Use
  Company Number: DE-ANIPHARMA-2017-DE-000035

PATIENT
  Age: 45 Year
  Sex: Male
  Weight: 80 kg

DRUGS (5)
  1. PROMETHAZINE HCL (NON-SPECIFIC) [Suspect]
     Active Substance: PROMETHAZINE HYDROCHLORIDE
  2. CLOZAPINE. [Suspect]
     Active Substance: CLOZAPINE
     Dosage: 100MG/DAY
  3. THIORIDAZINE [Suspect]
     Active Substance: THIORIDAZINE
  4. BENPERIDOL [Suspect]
     Active Substance: BENPERIDOL
  5. CHLORPROTHIXENE [Suspect]
     Active Substance: CHLORPROTHIXENE

REACTIONS (4)
  - Death [Fatal]
  - Circulatory collapse [Fatal]
  - Megacolon [Fatal]
  - Ileus paralytic [Fatal]
